FAERS Safety Report 23920290 (Version 2)
Quarter: 2024Q2

REPORT INFORMATION
  Report Type: Spontaneous
  Country: DE (occurrence: None)
  Receive Date: 20240530
  Receipt Date: 20240611
  Transmission Date: 20240716
  Serious: Yes (Other)
  Sender: FDA-Public Use
  Company Number: DE-ROCHE-3571344

PATIENT
  Age: 56 Year
  Sex: Male

DRUGS (1)
  1. OCREVUS [Suspect]
     Active Substance: OCRELIZUMAB
     Indication: Secondary progressive multiple sclerosis
     Route: 065
     Dates: start: 202002

REACTIONS (6)
  - Neutropenia [Unknown]
  - Off label use [Unknown]
  - Febrile infection [Unknown]
  - Oral candidiasis [Unknown]
  - Aphthous ulcer [Unknown]
  - Fatigue [Unknown]

NARRATIVE: CASE EVENT DATE: 20220901
